FAERS Safety Report 17068767 (Version 1)
Quarter: 2019Q4

REPORT INFORMATION
  Report Type: Spontaneous
  Country: ES (occurrence: ES)
  Receive Date: 20191123
  Receipt Date: 20191123
  Transmission Date: 20200122
  Serious: Yes (Other)
  Sender: FDA-Public Use
  Company Number: ES-MYLANLABS-2019M1112629

PATIENT
  Age: 57 Year
  Sex: Male

DRUGS (4)
  1. LEGALON [Concomitant]
     Active Substance: DIETARY SUPPLEMENT\HERBALS\MILK THISTLE
     Dosage: 300 MG, QD
     Route: 048
  2. EPINEPHRINE. [Suspect]
     Active Substance: EPINEPHRINE
     Indication: SURGERY
     Dosage: 1 DOSAGE FORM
     Route: 030
     Dates: start: 20190612, end: 20190612
  3. AUGMENTIN [Concomitant]
     Active Substance: AMOXICILLIN\CLAVULANATE POTASSIUM
     Indication: SURGERY
     Dosage: 875 MILLIGRAM, Q8H (TID)
     Route: 048
     Dates: start: 20190611, end: 20190618
  4. ZONISAMIDA [Concomitant]
     Dosage: 100 MILLIGRAM, QD
     Route: 048

REACTIONS (1)
  - Drug ineffective [Recovered/Resolved]

NARRATIVE: CASE EVENT DATE: 20190612
